FAERS Safety Report 4935178-4 (Version None)
Quarter: 2006Q1

REPORT INFORMATION
  Report Type: 
  Country: None (occurrence: None)
  Receive Date: 20060303
  Receipt Date: 20060303
  Transmission Date: 20060701
  Serious: Yes (Hospitalization, Other)
  Sender: FDA-Public Use
  Company Number: None

PATIENT
  Sex: Female
  Weight: 79 kg

DRUGS (5)
  1. DAUNORUBICIN HCL [Suspect]
     Indication: ACUTE LYMPHOCYTIC LEUKAEMIA
     Dosage: 318 MG
     Dates: start: 20060217, end: 20060219
  2. DEXAMETHASONE TAB [Suspect]
     Dosage: 140 MG
     Dates: start: 20060217, end: 20060223
  3. G-CSF FILGRASTIM AMGEN) [Suspect]
     Dosage: 3360 MG
     Dates: start: 20060217, end: 20060227
  4. L-ASPARAGINASE [Suspect]
     Dosage: 31860 UNIT
     Dates: start: 20060217, end: 20060227
  5. VINCRISTINE SULFATE [Suspect]
     Dosage: 4 MG
     Dates: start: 20060217, end: 20060224

REACTIONS (1)
  - HYPOTENSION [None]
